FAERS Safety Report 23133975 (Version 1)
Quarter: 2023Q4

REPORT INFORMATION
  Report Type: Spontaneous
  Country: US (occurrence: US)
  Receive Date: 20231101
  Receipt Date: 20231101
  Transmission Date: 20240110
  Serious: No
  Sender: FDA-Public Use
  Company Number: US-ABBVIE-5476974

PATIENT

DRUGS (1)
  1. SYNTHROID [Suspect]
     Active Substance: LEVOTHYROXINE SODIUM
     Indication: Product used for unknown indication
     Dosage: DOSAGE: 25 MCG
     Route: 048

REACTIONS (5)
  - Headache [Unknown]
  - Fatigue [Unknown]
  - Malaise [Unknown]
  - Facial pain [Unknown]
  - Product contamination physical [Unknown]

NARRATIVE: CASE EVENT DATE: 20230101
